FAERS Safety Report 6967710-3 (Version None)
Quarter: 2010Q3

REPORT INFORMATION
  Report Type: 
  Country: None (occurrence: None)
  Receive Date: 20100907
  Receipt Date: 20100826
  Transmission Date: 20110219
  Serious: Yes (Death, Life-Threatening)
  Sender: FDA-Public Use
  Company Number: JP-PFIZER INC-2010083629

PATIENT
  Age: 68 Year
  Sex: Male

DRUGS (8)
  1. ZYVOX [Suspect]
     Indication: ENTEROCOCCAL BACTERAEMIA
     Dosage: 600 MG, 2X/DAY
     Route: 041
     Dates: start: 20100624, end: 20100725
  2. ZYVOX [Suspect]
     Indication: ENTEROCOCCAL SEPSIS
  3. ZYVOX [Suspect]
     Dosage: 600 MG, 2X/DAY
     Route: 048
     Dates: start: 20100702, end: 20100707
  4. ZYVOX [Suspect]
  5. PENTCILLIN [Suspect]
     Indication: PNEUMONIA
     Dosage: 2 G, 2X/DAY
     Route: 041
     Dates: start: 20100616, end: 20100622
  6. PENTCILLIN [Suspect]
     Dosage: 2 G, 3X/DAY
     Dates: start: 20100623, end: 20100625
  7. HABEKACIN [Suspect]
     Indication: SEPSIS
     Dosage: 0.2 G, 1X/DAY
     Route: 041
     Dates: start: 20100616, end: 20100623
  8. FLUCONAZOLE [Concomitant]
     Dosage: 800 MG, 1X/DAY
     Route: 041
     Dates: start: 20100616, end: 20100625

REACTIONS (2)
  - CEREBRAL HAEMORRHAGE [None]
  - RENAL IMPAIRMENT [None]
